FAERS Safety Report 4929178-8 (Version None)
Quarter: 2006Q1

REPORT INFORMATION
  Report Type: 
  Country: None (occurrence: None)
  Receive Date: 20060301
  Receipt Date: 20060222
  Transmission Date: 20060701
  Serious: Yes (Death)
  Sender: FDA-Public Use
  Company Number: 2006GB00320

PATIENT
  Age: 85 Year
  Sex: Male

DRUGS (14)
  1. LISINOPRIL [Suspect]
     Indication: CARDIAC FAILURE
     Route: 048
     Dates: start: 20051101
  2. LISINOPRIL [Suspect]
     Dosage: DOSE INCREASED
     Route: 048
     Dates: end: 20060101
  3. OMEPRAZOLE [Concomitant]
     Route: 065
  4. ACETAMINOPHEN [Concomitant]
     Route: 065
  5. LACTULOSE [Concomitant]
     Route: 065
  6. ASPIRIN [Concomitant]
     Route: 065
  7. FLUOXETINE HCL [Concomitant]
     Route: 065
  8. SENNA [Concomitant]
     Route: 065
  9. MONOMAX [Concomitant]
     Dosage: ^XL^ 30 MG
     Route: 065
  10. SPIRONOLACTONE [Concomitant]
     Route: 065
  11. FRUSEMIDE [Concomitant]
     Route: 065
  12. TIZANIDINE HCL [Concomitant]
     Route: 065
  13. CO-BENELDOPA [Concomitant]
     Dosage: 25/100 FOUR TIMES DAILY
     Route: 065
  14. HYDROXYUREA [Concomitant]
     Route: 065

REACTIONS (1)
  - RENAL FAILURE [None]
